FAERS Safety Report 7092640-9 (Version None)
Quarter: 2010Q4

REPORT INFORMATION
  Report Type: 
  Country: None (occurrence: None)
  Receive Date: 20101108
  Receipt Date: 20101108
  Transmission Date: 20110411
  Serious: Yes (Other)
  Sender: FDA-Public Use
  Company Number: None

PATIENT
  Age: 83 Year
  Sex: Female
  Weight: 71.2147 kg

DRUGS (1)
  1. OMEPRAZOLE [Suspect]
     Indication: GASTROOESOPHAGEAL REFLUX DISEASE
     Dosage: 1 1 A DAY PO
     Route: 048
     Dates: start: 19980101, end: 20101001

REACTIONS (7)
  - CHEST DISCOMFORT [None]
  - FLATULENCE [None]
  - GASTRIC POLYPS [None]
  - HIATUS HERNIA [None]
  - INCORRECT DRUG ADMINISTRATION DURATION [None]
  - PRODUCT SUBSTITUTION ISSUE [None]
  - VOMITING [None]
